FAERS Safety Report 18405909 (Version 1)
Quarter: 2020Q4

REPORT INFORMATION
  Report Type: Report from Study
  Country: KR (occurrence: KR)
  Receive Date: 20201020
  Receipt Date: 20201020
  Transmission Date: 20210114
  Serious: Yes (Hospitalization, Disabling)
  Sender: FDA-Public Use
  Company Number: KR-LARKEN LABORATORIES, INC.-2092949

PATIENT
  Age: 22 Year
  Sex: Female
  Weight: 54.55 kg

DRUGS (1)
  1. OFLOXACIN TABLET FILM COATED [Suspect]
     Active Substance: OFLOXACIN
     Route: 048

REACTIONS (2)
  - Stevens-Johnson syndrome [Recovered/Resolved with Sequelae]
  - Microstomia [Recovered/Resolved with Sequelae]
